FAERS Safety Report 23175194 (Version 1)
Quarter: 2023Q4

REPORT INFORMATION
  Report Type: Spontaneous
  Country: US (occurrence: US)
  Receive Date: 20231113
  Receipt Date: 20231113
  Transmission Date: 20240110
  Serious: No
  Sender: FDA-Public Use
  Company Number: US-SA-SAC20231108000247

PATIENT
  Age: 34 Year
  Sex: Female

DRUGS (17)
  1. DUPIXENT [Suspect]
     Active Substance: DUPILUMAB
     Indication: Dermatitis atopic
     Dosage: 300 MG QOW
     Route: 058
     Dates: start: 20230502
  2. CARVEDILOL [Concomitant]
     Active Substance: CARVEDILOL
  3. CETROTIDE [Concomitant]
     Active Substance: CETRORELIX ACETATE
  4. CLOBETASOL PROPIONATE [Concomitant]
     Active Substance: CLOBETASOL PROPIONATE
  5. FISH OIL [Concomitant]
     Active Substance: FISH OIL
  6. FOLIC ACID [Concomitant]
     Active Substance: FOLIC ACID
  7. GONAL-F [Concomitant]
     Active Substance: FOLLITROPIN
  8. INOSITOL [Concomitant]
     Active Substance: INOSITOL
  9. LEUPROLIDE ACETATE [Concomitant]
     Active Substance: LEUPROLIDE ACETATE
  10. MENOPUR [Concomitant]
     Active Substance: FOLLITROPIN\LUTEINIZING HORMONE
  11. PROGESTERONE [Concomitant]
     Active Substance: PROGESTERONE
  12. PROZAC [Concomitant]
     Active Substance: FLUOXETINE HYDROCHLORIDE
  13. VITAMIN D NOS [Concomitant]
     Active Substance: VITAMIN D NOS
  14. CHILDRENS ZYRTEC [Concomitant]
     Active Substance: CETIRIZINE HYDROCHLORIDE
  15. COENZYME Q10 [Concomitant]
     Active Substance: DIETARY SUPPLEMENT\UBIDECARENONE
  16. GONADOTROPHIN, CHORIONIC [Concomitant]
     Active Substance: GONADOTROPHIN, CHORIONIC
  17. TRIAMCINOLONE [Concomitant]
     Active Substance: TRIAMCINOLONE

REACTIONS (1)
  - Injection site pain [Unknown]

NARRATIVE: CASE EVENT DATE: 20230101
